FAERS Safety Report 18156121 (Version 1)
Quarter: 2020Q3

REPORT INFORMATION
  Report Type: Spontaneous
  Country: US (occurrence: US)
  Receive Date: 20200814
  Receipt Date: 20200814
  Transmission Date: 20201103
  Serious: No
  Sender: FDA-Public Use
  Company Number: None

PATIENT
  Sex: Male

DRUGS (1)
  1. INLYTA [Suspect]
     Active Substance: AXITINIB
     Indication: RENAL CANCER
     Route: 048
     Dates: start: 20200222

REACTIONS (6)
  - Therapy change [None]
  - Decreased appetite [None]
  - Stomatitis [None]
  - Head injury [None]
  - Loss of consciousness [None]
  - Fall [None]
